FAERS Safety Report 13524250 (Version 2)
Quarter: 2017Q3

REPORT INFORMATION
  Report Type: Other
  Country: GB (occurrence: GB)
  Receive Date: 20170508
  Receipt Date: 20170822
  Transmission Date: 20171127
  Serious: Yes (Disabling, Other)
  Sender: FDA-Public Use
  Company Number: GB-PERRIGO-17GB003577

PATIENT

DRUGS (9)
  1. IODINE. [Concomitant]
     Active Substance: IODINE
     Indication: MENIERE^S DISEASE
     Dosage: UNK
     Route: 065
  2. QUININE [Concomitant]
     Active Substance: QUININE
     Indication: MENIERE^S DISEASE
     Dosage: UNK
     Route: 065
  3. OMEPRAZOLE. [Suspect]
     Active Substance: OMEPRAZOLE
     Indication: GASTROOESOPHAGEAL REFLUX DISEASE
     Dosage: UNK, UNK
     Route: 048
     Dates: start: 20130101, end: 20161101
  4. LANSOPRAZOLE. [Suspect]
     Active Substance: LANSOPRAZOLE
     Indication: GASTROOESOPHAGEAL REFLUX DISEASE
     Dosage: UNK, UNK
     Route: 048
     Dates: start: 20130101, end: 20161101
  5. BUCCASTEM [Concomitant]
     Indication: MENIERE^S DISEASE
     Dosage: UNK
     Route: 065
  6. RANITIDINE HYDROCHLORIDE. [Suspect]
     Active Substance: RANITIDINE HYDROCHLORIDE
     Indication: GASTROOESOPHAGEAL REFLUX DISEASE
     Dosage: UNK, UNK
     Route: 065
     Dates: start: 20160901, end: 20161101
  7. PROCHLORPERAZINE. [Concomitant]
     Active Substance: PROCHLORPERAZINE
     Indication: MENIERE^S DISEASE
  8. GAVISCON                           /00237601/ [Suspect]
     Active Substance: ALUMINUM HYDROXIDE\MAGNESIUM CARBONATE
     Indication: GASTROOESOPHAGEAL REFLUX DISEASE
     Dosage: UNK, UNK
     Route: 048
     Dates: start: 20130101, end: 20161101
  9. VALIUM [Concomitant]
     Active Substance: DIAZEPAM
     Indication: MENIERE^S DISEASE
     Dosage: UNK
     Route: 065

REACTIONS (12)
  - Flatulence [Recovering/Resolving]
  - Gastrointestinal pain [Recovering/Resolving]
  - Abdominal pain [Recovering/Resolving]
  - Abdominal pain upper [Recovering/Resolving]
  - Abdominal distension [Recovering/Resolving]
  - Eructation [Recovering/Resolving]
  - Muscle spasms [Recovering/Resolving]
  - Diarrhoea [Recovered/Resolved]
  - Gastrooesophageal reflux disease [Recovering/Resolving]
  - Drug hypersensitivity [Unknown]
  - Flatulence [Recovering/Resolving]
  - Rectal discharge [Recovering/Resolving]

NARRATIVE: CASE EVENT DATE: 20130701
